FAERS Safety Report 25861693 (Version 1)
Quarter: 2025Q3

REPORT INFORMATION
  Report Type: Spontaneous
  Country: US (occurrence: US)
  Receive Date: 20250930
  Receipt Date: 20250930
  Transmission Date: 20251021
  Serious: No
  Sender: ABBVIE
  Company Number: US-ABBVIE-6475681

PATIENT

DRUGS (2)
  1. HUMIRA [Suspect]
     Active Substance: ADALIMUMAB
     Indication: Birdshot chorioretinopathy
     Dosage: FORM STRENGTH:40 MG
     Route: 058
     Dates: start: 2021
  2. METHOTREXATE [Concomitant]
     Active Substance: METHOTREXATE
     Indication: Product used for unknown indication

REACTIONS (4)
  - Metabolic disorder [Unknown]
  - Rash [Unknown]
  - Drug level increased [Unknown]
  - Off label use [Unknown]

NARRATIVE: CASE EVENT DATE: 20250401
